FAERS Safety Report 5567672-X (Version None)
Quarter: 2007Q4

REPORT INFORMATION
  Report Type: 
  Country: None (occurrence: None)
  Receive Date: 20071214
  Receipt Date: 20071203
  Transmission Date: 20080405
  Serious: Yes (Hospitalization)
  Sender: FDA-Public Use
  Company Number: 164666USA

PATIENT
  Age: 50 Year
  Sex: Female
  Weight: 77 kg

DRUGS (11)
  1. FLUOROURACIL [Suspect]
     Indication: COLON CANCER
     Dosage: 728 MG/M2 (1 IN 2 WK), INTRAVENOUS
     Route: 042
     Dates: start: 20070815
  2. FOLINIC ACID [Suspect]
     Indication: COLON CANCER
     Dosage: 728 MG/M2 (1 IN 2 WK), INTRAVENOUS
     Route: 042
     Dates: start: 20070815
  3. BEVACIZUMAB [Suspect]
     Indication: COLON CANCER
     Dosage: 372. 5 MG (5 MG/KG 1 IN 14 DAYS) (1 IN 2 WK), INTRAVENOUS
     Route: 042
     Dates: start: 20070815
  4. OXALIPLATIN [Suspect]
     Indication: COLON CANCER
     Dosage: 154. 7 MG (85 MG/KG 1 IN 14 DAYS) (154.7 MG, 1 IN 2 WK), INTRAVENOUS
     Route: 042
     Dates: start: 20070815
  5. CLONIDINE HYDROCHLORIDE [Concomitant]
  6. LISINOPRIL [Concomitant]
  7. ATENOLOL [Concomitant]
  8. HYDROCODONE BITARTRATE [Concomitant]
  9. ASCORBIC ACID [Concomitant]
  10. TOCOPHEROL CONCENTRATE CAP [Concomitant]
  11. VITAMIN CAP [Concomitant]

REACTIONS (9)
  - ANOREXIA [None]
  - DEHYDRATION [None]
  - DIARRHOEA [None]
  - DRUG HYPERSENSITIVITY [None]
  - HOT FLUSH [None]
  - HYPOTENSION [None]
  - NEUTROPHIL COUNT DECREASED [None]
  - RENAL FAILURE ACUTE [None]
  - URINARY TRACT INFECTION [None]
